FAERS Safety Report 19313963 (Version 1)
Quarter: 2021Q2

REPORT INFORMATION
  Report Type: Report from Study
  Country: US (occurrence: US)
  Receive Date: 20210527
  Receipt Date: 20210527
  Transmission Date: 20210717
  Serious: Yes (Death)
  Sender: FDA-Public Use
  Company Number: US-BAYER-2021-148194

PATIENT
  Age: 46 Year
  Sex: Female

DRUGS (2)
  1. ADEMPAS [Suspect]
     Active Substance: RIOCIGUAT
     Indication: PULMONARY ARTERIAL HYPERTENSION
     Dosage: UNK
     Route: 048
  2. ADEMPAS [Suspect]
     Active Substance: RIOCIGUAT
     Indication: PULMONARY ARTERIAL HYPERTENSION
     Dosage: 22.5 MG, TID
     Route: 048
     Dates: start: 20210309, end: 20210504

REACTIONS (2)
  - Death [Fatal]
  - Incorrect dose administered [None]

NARRATIVE: CASE EVENT DATE: 20210504
